FAERS Safety Report 6638390-1 (Version None)
Quarter: 2010Q1

REPORT INFORMATION
  Report Type: 
  Country: None (occurrence: None)
  Receive Date: 20100317
  Receipt Date: 20100308
  Transmission Date: 20100710
  Serious: Yes (Other)
  Sender: FDA-Public Use
  Company Number: B0638145A

PATIENT
  Sex: Male

DRUGS (2)
  1. ESKAZOLE [Suspect]
     Indication: HEPATIC ECHINOCOCCIASIS
     Route: 048
     Dates: start: 20091112, end: 20100113
  2. VIRLIX [Concomitant]
     Indication: RHINITIS ALLERGIC
     Route: 065

REACTIONS (2)
  - HEPATOCELLULAR INJURY [None]
  - LIVER FUNCTION TEST ABNORMAL [None]
